FAERS Safety Report 20552785 (Version 1)
Quarter: 2022Q1

REPORT INFORMATION
  Report Type: Spontaneous
  Country: CN (occurrence: None)
  Receive Date: 20220304
  Receipt Date: 20220304
  Transmission Date: 20220423
  Serious: Yes (Hospitalization, Other)
  Sender: FDA-Public Use
  Company Number: 2022A082006

PATIENT
  Age: 72 Year
  Sex: Male
  Weight: 85 kg

DRUGS (3)
  1. IMFINZI [Interacting]
     Active Substance: DURVALUMAB
     Indication: Small cell lung cancer extensive stage
     Dosage: 1000 MG/CYCLE
     Route: 042
     Dates: start: 20211101
  2. IMFINZI [Interacting]
     Active Substance: DURVALUMAB
     Indication: Small cell lung cancer extensive stage
     Route: 042
     Dates: start: 20220216
  3. IMFINZI [Interacting]
     Active Substance: DURVALUMAB
     Indication: Small cell lung cancer extensive stage
     Route: 042
     Dates: start: 20220219

REACTIONS (4)
  - Drug interaction [Recovered/Resolved]
  - Infectious pleural effusion [Recovered/Resolved]
  - Pneumonia [Recovering/Resolving]
  - Pneumonitis [Recovered/Resolved]
